FAERS Safety Report 23231565 (Version 1)
Quarter: 2023Q4

REPORT INFORMATION
  Report Type: Spontaneous
  Country: US (occurrence: None)
  Receive Date: 20231124
  Receipt Date: 20231124
  Transmission Date: 20240110
  Serious: Yes (Hospitalization, Disabling)
  Sender: FDA-Public Use
  Company Number: None

PATIENT
  Age: 58 Year
  Sex: Female
  Weight: 75.6 kg

DRUGS (1)
  1. MOUNJARO [Suspect]
     Active Substance: TIRZEPATIDE
     Indication: Glucose tolerance impaired
     Dosage: OTHER FREQUENCY : ONCE A WEEK;?OTHER ROUTE : TUMMY;?
     Route: 050
     Dates: start: 20221101, end: 20230301

REACTIONS (11)
  - Dehydration [None]
  - Vomiting projectile [None]
  - Muscle spasms [None]
  - Constipation [None]
  - Impaired gastric emptying [None]
  - Ulcer haemorrhage [None]
  - Hiatus hernia [None]
  - Pancreatic disorder [None]
  - Gastrointestinal disorder [None]
  - Post-traumatic stress disorder [None]
  - Eating disorder [None]

NARRATIVE: CASE EVENT DATE: 20221101
